FAERS Safety Report 6189942-7 (Version None)
Quarter: 2009Q2

REPORT INFORMATION
  Report Type: 
  Country: None (occurrence: None)
  Receive Date: 20090514
  Receipt Date: 20090504
  Transmission Date: 20091009
  Serious: Yes (Other)
  Sender: FDA-Public Use
  Company Number: PHHO2009US04830

PATIENT
  Sex: Male
  Weight: 84.1 kg

DRUGS (3)
  1. RAD 666 RAD+TAB+PTR [Suspect]
     Indication: HEART TRANSPLANT
     Dosage: 0.75 MG, BID
     Route: 048
     Dates: start: 20070529
  2. NEORAL [Suspect]
     Indication: RENAL TRANSPLANT
     Dosage: 50 MG, BID
     Route: 048
     Dates: start: 20080105
  3. PREDNISOLONE [Concomitant]
     Dosage: UNK
     Dates: start: 20080105

REACTIONS (2)
  - BASAL CELL CARCINOMA [None]
  - CONCOMITANT DISEASE PROGRESSION [None]
